FAERS Safety Report 5100692-8 (Version None)
Quarter: 2006Q3

REPORT INFORMATION
  Report Type: 
  Country: None (occurrence: None)
  Receive Date: 20060906
  Receipt Date: 20060512
  Transmission Date: 20061208
  Serious: Yes (Hospitalization)
  Sender: FDA-Public Use
  Company Number: ALMO2006013

PATIENT
  Age: 38 Year
  Sex: Female

DRUGS (1)
  1. ALMOTRIPTAN MALATE [Suspect]
     Indication: MIGRAINE
     Dosage: 12.5 MG ONCE PO
     Route: 048
     Dates: start: 20060307

REACTIONS (7)
  - DYSGEUSIA [None]
  - FALL [None]
  - GRAND MAL CONVULSION [None]
  - HYPERTONIA [None]
  - PALLOR [None]
  - RALES [None]
  - VASOSPASM [None]
